FAERS Safety Report 8188818-3 (Version None)
Quarter: 2012Q1

REPORT INFORMATION
  Report Type: 
  Country: None (occurrence: None)
  Receive Date: 20120306
  Receipt Date: 20120228
  Transmission Date: 20120608
  Serious: Yes (Other)
  Sender: FDA-Public Use
  Company Number: FR-GILEAD-2012-0050448

PATIENT
  Age: 25 Year
  Sex: Male

DRUGS (9)
  1. BACTRIM DS [Concomitant]
     Indication: PRODUCT USED FOR UNKNOWN INDICATION
     Dosage: 3 DF, Q1WK
     Route: 048
  2. CYCLOPHOSPHAMIDE [Concomitant]
     Indication: SCLERODERMA
     Dosage: UNK
  3. POTASSIUM CHLORIDE [Concomitant]
     Indication: PRODUCT USED FOR UNKNOWN INDICATION
     Dosage: UNK
  4. PREDNISONE TAB [Concomitant]
     Indication: PRODUCT USED FOR UNKNOWN INDICATION
     Dosage: 15 MG, UNK
  5. FUNGIZONE [Concomitant]
     Indication: PRODUCT USED FOR UNKNOWN INDICATION
     Dosage: UNK
     Route: 048
  6. CALCIDOSE                          /00108001/ [Concomitant]
     Indication: PRODUCT USED FOR UNKNOWN INDICATION
     Dosage: UNK
  7. PANTOPRAZOLE [Concomitant]
     Indication: PRODUCT USED FOR UNKNOWN INDICATION
     Dosage: UNK
  8. VIREAD [Suspect]
     Indication: HEPATITIS B
  9. LAMIVUDINE [Concomitant]
     Indication: PRODUCT USED FOR UNKNOWN INDICATION
     Dosage: UNK
     Dates: start: 20000101, end: 20110101

REACTIONS (5)
  - VIRAL LOAD INCREASED [None]
  - TRANSAMINASES INCREASED [None]
  - DRUG INTERACTION [None]
  - DRUG INEFFECTIVE [None]
  - HEPATITIS B [None]
